FAERS Safety Report 17215964 (Version 1)
Quarter: 2019Q4

REPORT INFORMATION
  Report Type: Spontaneous
  Country: IT (occurrence: IT)
  Receive Date: 20191230
  Receipt Date: 20191230
  Transmission Date: 20200122
  Serious: Yes (Death, Other)
  Sender: FDA-Public Use
  Company Number: IT-MYLANLABS-2019M1129252

PATIENT
  Age: 57 Year
  Sex: Male

DRUGS (1)
  1. IMATINIB. [Suspect]
     Active Substance: IMATINIB MESYLATE
     Indication: ACUTE MYELOID LEUKAEMIA
     Dosage: 200 MG, QD
     Route: 065

REACTIONS (10)
  - Acquired gene mutation [Unknown]
  - Acute kidney injury [Unknown]
  - Acute respiratory distress syndrome [Unknown]
  - Hyperpyrexia [Unknown]
  - Drug resistance [Unknown]
  - Thrombocytopenia [Unknown]
  - Blast cell count increased [Fatal]
  - Anaemia [Unknown]
  - Leukocytosis [Unknown]
  - Eosinophilia [Unknown]
